FAERS Safety Report 19213311 (Version 1)
Quarter: 2021Q2

REPORT INFORMATION
  Report Type: Spontaneous
  Country: US (occurrence: US)
  Receive Date: 20210504
  Receipt Date: 20210504
  Transmission Date: 20210717
  Serious: No
  Sender: FDA-Public Use
  Company Number: US-MYLANLABS-2021M1024115

PATIENT
  Sex: Female
  Weight: 75 kg

DRUGS (1)
  1. FENTANYL TRANSDERMAL SYSTEM [Suspect]
     Active Substance: FENTANYL
     Indication: PLASMA CELL MYELOMA
     Dosage: ONE PATCH FOR 72 HOURS
     Route: 062

REACTIONS (1)
  - Off label use [Recovering/Resolving]
